FAERS Safety Report 8907279 (Version 1)
Quarter: 2012Q4

REPORT INFORMATION
  Report Type: 
  Country: JP (occurrence: JP)
  Receive Date: 20121114
  Receipt Date: 20121114
  Transmission Date: 20130627
  Serious: Yes (Other)
  Sender: FDA-Public Use
  Company Number: JP-009507513-2012SP019396

PATIENT
  Age: 62 Year
  Sex: Male
  Weight: 66 kg

DRUGS (8)
  1. PEGINTERFERON ALFA-2B [Suspect]
     Indication: HEPATITIS C
     Dosage: 0.9 ?g/kg, QW
     Route: 051
     Dates: start: 20120306, end: 20120313
  2. REBETOL [Suspect]
     Indication: HEPATITIS C
     Dosage: 800 mg, QD
     Route: 048
     Dates: start: 20120306, end: 20120322
  3. TELAVIC [Suspect]
     Indication: HEPATITIS C
     Dosage: 2250 mg, QD
     Route: 048
     Dates: start: 20120306, end: 20120322
  4. ATARAX P [Concomitant]
     Indication: BIOPSY LIVER
     Dosage: UPDATE (13JUN2012): CUMULATIVE DOSE 25MG
     Route: 042
     Dates: start: 20120307, end: 20120307
  5. ADONA [Concomitant]
     Indication: BIOPSY LIVER
     Dosage: UPDATE (13JUN2012): CUMULATIVE DOSE 200 MG
     Route: 042
     Dates: start: 20120307, end: 20120308
  6. TRANSAMIN [Concomitant]
     Indication: BIOPSY LIVER
     Dosage: UPDATE (13JUN2012): CUMULATIVE DOSE 2GM
     Route: 042
     Dates: start: 20120307, end: 20120308
  7. ATROPINE SULFATE [Concomitant]
     Indication: BIOPSY LIVER
     Dosage: UPDATE (13JUN2012): CUMULATIVE DOSE 0.5 MG
     Route: 042
     Dates: start: 20120307, end: 20120307
  8. RASENAZOLIN [Concomitant]
     Indication: BIOPSY LIVER
     Dosage: UPDATE (13JUN2012):CUMULATIVE DOSE 2GM
     Route: 042
     Dates: start: 20120307, end: 20120307

REACTIONS (1)
  - Depression [Not Recovered/Not Resolved]
